FAERS Safety Report 6644427-6 (Version None)
Quarter: 2010Q1

REPORT INFORMATION
  Report Type: 
  Country: None (occurrence: None)
  Receive Date: 20100304
  Receipt Date: 20090626
  Transmission Date: 20100710
  Serious: Yes (Life-Threatening, Hospitalization)
  Sender: FDA-Public Use
  Company Number: US-003045

PATIENT
  Sex: Male

DRUGS (6)
  1. ISOVUE-300 [Suspect]
     Indication: CARDIAC STRESS TEST
     Dosage: 80ML QD UNKNOWN
     Dates: start: 20090520, end: 20090520
  2. ISOVUE-300 [Suspect]
     Indication: COMPUTERISED TOMOGRAM CORONARY ARTERY
     Dosage: 80ML QD UNKNOWN
     Dates: start: 20090520, end: 20090520
  3. BENADRYL [Concomitant]
  4. PREDNISONE TAB [Concomitant]
  5. PEPCID [Concomitant]
  6. INHALER [Concomitant]

REACTIONS (1)
  - ANAPHYLACTOID REACTION [None]
